FAERS Safety Report 25690466 (Version 1)
Quarter: 2025Q3

REPORT INFORMATION
  Report Type: Spontaneous
  Country: MY (occurrence: MY)
  Receive Date: 20250818
  Receipt Date: 20250818
  Transmission Date: 20251021
  Serious: Yes (Death)
  Sender: MYLAN
  Company Number: MY-MYLANLABS-2025M1069844

PATIENT
  Age: 41 Year
  Sex: Female

DRUGS (24)
  1. ETOPOSIDE [Suspect]
     Active Substance: ETOPOSIDE
     Indication: Blastic plasmacytoid dendritic cell neoplasia
     Dosage: 80 MILLIGRAM/SQ. METER, QD, RECEIVED AS A PART OF MEC REGIMEN
  2. ETOPOSIDE [Suspect]
     Active Substance: ETOPOSIDE
     Indication: Acute myeloid leukaemia
     Dosage: 80 MILLIGRAM/SQ. METER, QD, RECEIVED AS A PART OF MEC REGIMEN
     Route: 065
  3. ETOPOSIDE [Suspect]
     Active Substance: ETOPOSIDE
     Dosage: 80 MILLIGRAM/SQ. METER, QD, RECEIVED AS A PART OF MEC REGIMEN
     Route: 065
  4. ETOPOSIDE [Suspect]
     Active Substance: ETOPOSIDE
     Dosage: 80 MILLIGRAM/SQ. METER, QD, RECEIVED AS A PART OF MEC REGIMEN
  5. DAUNORUBICIN [Suspect]
     Active Substance: DAUNORUBICIN
     Indication: Blastic plasmacytoid dendritic cell neoplasia
     Dosage: 50 MILLIGRAM/SQ. METER, QD, RECEIVED AS A PART OF 3+7 REGIME
  6. DAUNORUBICIN [Suspect]
     Active Substance: DAUNORUBICIN
     Indication: Acute myeloid leukaemia
     Dosage: 50 MILLIGRAM/SQ. METER, QD, RECEIVED AS A PART OF 3+7 REGIME
     Route: 065
  7. DAUNORUBICIN [Suspect]
     Active Substance: DAUNORUBICIN
     Dosage: 50 MILLIGRAM/SQ. METER, QD, RECEIVED AS A PART OF 3+7 REGIME
     Route: 065
  8. DAUNORUBICIN [Suspect]
     Active Substance: DAUNORUBICIN
     Dosage: 50 MILLIGRAM/SQ. METER, QD, RECEIVED AS A PART OF 3+7 REGIME
  9. CYTARABINE [Suspect]
     Active Substance: CYTARABINE
     Indication: Blastic plasmacytoid dendritic cell neoplasia
     Dosage: 100 MILLIGRAM/SQ. METER, QD, RECEIVED AS A PART OF 3+7 REGIME
  10. CYTARABINE [Suspect]
     Active Substance: CYTARABINE
     Indication: Acute myeloid leukaemia
     Dosage: 100 MILLIGRAM/SQ. METER, QD, RECEIVED AS A PART OF 3+7 REGIME
  11. CYTARABINE [Suspect]
     Active Substance: CYTARABINE
     Dosage: 100 MILLIGRAM/SQ. METER, QD, RECEIVED AS A PART OF 3+7 REGIME
     Route: 065
  12. CYTARABINE [Suspect]
     Active Substance: CYTARABINE
     Dosage: 100 MILLIGRAM/SQ. METER, QD, RECEIVED AS A PART OF 3+7 REGIME
     Route: 065
  13. CYTARABINE [Suspect]
     Active Substance: CYTARABINE
     Dosage: UNK, QD, 1G/M2/DAY; RECEIVED AS A PART OF MEC REGIMEN
  14. CYTARABINE [Suspect]
     Active Substance: CYTARABINE
     Dosage: UNK, QD, 1G/M2/DAY; RECEIVED AS A PART OF MEC REGIMEN
  15. CYTARABINE [Suspect]
     Active Substance: CYTARABINE
     Dosage: UNK, QD, 1G/M2/DAY; RECEIVED AS A PART OF MEC REGIMEN
     Route: 065
  16. CYTARABINE [Suspect]
     Active Substance: CYTARABINE
     Dosage: UNK, QD, 1G/M2/DAY; RECEIVED AS A PART OF MEC REGIMEN
     Route: 065
  17. CYTARABINE [Suspect]
     Active Substance: CYTARABINE
     Dosage: 2 MILLIGRAM/SQ. METER, QD, RECEIVED AS A PART OF FLAG-IDA REGIMEN
  18. CYTARABINE [Suspect]
     Active Substance: CYTARABINE
     Dosage: 2 MILLIGRAM/SQ. METER, QD, RECEIVED AS A PART OF FLAG-IDA REGIMEN
     Route: 065
  19. CYTARABINE [Suspect]
     Active Substance: CYTARABINE
     Dosage: 2 MILLIGRAM/SQ. METER, QD, RECEIVED AS A PART OF FLAG-IDA REGIMEN
  20. CYTARABINE [Suspect]
     Active Substance: CYTARABINE
     Dosage: 2 MILLIGRAM/SQ. METER, QD, RECEIVED AS A PART OF FLAG-IDA REGIMEN
     Route: 065
  21. MITOXANTRONE [Suspect]
     Active Substance: MITOXANTRONE HYDROCHLORIDE
     Indication: Blastic plasmacytoid dendritic cell neoplasia
     Dosage: 6 MILLIGRAM/SQ. METER, QD, RECEIVED AS A PART OF MEC REGIMEN
  22. MITOXANTRONE [Suspect]
     Active Substance: MITOXANTRONE HYDROCHLORIDE
     Indication: Acute myeloid leukaemia
     Dosage: 6 MILLIGRAM/SQ. METER, QD, RECEIVED AS A PART OF MEC REGIMEN
     Route: 065
  23. MITOXANTRONE [Suspect]
     Active Substance: MITOXANTRONE HYDROCHLORIDE
     Dosage: 6 MILLIGRAM/SQ. METER, QD, RECEIVED AS A PART OF MEC REGIMEN
     Route: 065
  24. MITOXANTRONE [Suspect]
     Active Substance: MITOXANTRONE HYDROCHLORIDE
     Dosage: 6 MILLIGRAM/SQ. METER, QD, RECEIVED AS A PART OF MEC REGIMEN

REACTIONS (1)
  - Drug ineffective [Fatal]
